FAERS Safety Report 9822233 (Version 2)
Quarter: 2014Q4

REPORT INFORMATION
  Report Type: Spontaneous
  Country: US (occurrence: US)
  Receive Date: 20140116
  Receipt Date: 20141209
  Transmission Date: 20150529
  Serious: Yes (Other)
  Sender: FDA-Public Use
  Company Number: US-BAYER-2014-007409

PATIENT
  Age: 18 Year
  Sex: Female
  Weight: 89.8 kg

DRUGS (2)
  1. MIRENA [Suspect]
     Active Substance: LEVONORGESTREL
     Indication: CONTRACEPTION
     Dosage: 20 MCG/24HR, CONT
     Route: 015
     Dates: start: 200711
  2. MIRENA [Suspect]
     Active Substance: LEVONORGESTREL
     Indication: CONTRACEPTION
     Dosage: 20 MCG/24HR, CONT
     Dates: start: 200907, end: 201007

REACTIONS (7)
  - Uterine perforation [None]
  - Pelvic inflammatory disease [None]
  - Pain [None]
  - Endometriosis [None]
  - Injury [None]
  - Ovarian cyst [None]
  - Cervix disorder [None]

NARRATIVE: CASE EVENT DATE: 200906
